FAERS Safety Report 9571066 (Version 1)
Quarter: 2013Q3

REPORT INFORMATION
  Report Type: Spontaneous
  Country: US (occurrence: None)
  Receive Date: 20130927
  Receipt Date: 20130927
  Transmission Date: 20140515
  Serious: Yes (Hospitalization)
  Sender: FDA-Public Use
  Company Number: None

PATIENT
  Age: 59 Year
  Sex: Male
  Weight: 190.4 kg

DRUGS (3)
  1. FENTANYL [Suspect]
     Indication: SEDATION
     Dates: start: 20130703, end: 20130703
  2. FENTANYL [Suspect]
     Indication: PAIN
     Dates: start: 20130703, end: 20130703
  3. MORPHINE [Suspect]
     Dates: start: 20130703, end: 20130703

REACTIONS (2)
  - Hypoxia [None]
  - Overdose [None]
